FAERS Safety Report 20385627 (Version 1)
Quarter: 2022Q1

REPORT INFORMATION
  Report Type: Spontaneous
  Country: US (occurrence: US)
  Receive Date: 20220127
  Receipt Date: 20220127
  Transmission Date: 20220423
  Serious: No
  Sender: FDA-Public Use
  Company Number: US-PERRIGO-21US009708

PATIENT
  Age: 74 Year
  Sex: Female

DRUGS (2)
  1. OMEPRAZOLE [Suspect]
     Active Substance: OMEPRAZOLE
     Indication: Gastrooesophageal reflux disease
     Dosage: 20 MG, QD
     Route: 050
     Dates: start: 20210514, end: 20210713
  2. OMEPRAZOLE [Suspect]
     Active Substance: OMEPRAZOLE
     Indication: Gastrooesophageal reflux disease
     Dosage: 20 MG, QD
     Route: 050
     Dates: start: 20210727, end: 20211121

REACTIONS (15)
  - Limb discomfort [Recovering/Resolving]
  - Feeling abnormal [Recovered/Resolved]
  - Constipation [Recovered/Resolved]
  - Asthenia [Recovered/Resolved]
  - Dizziness [Recovered/Resolved]
  - Incorrect product administration duration [Recovered/Resolved]
  - Vomiting [Not Recovered/Not Resolved]
  - Burning sensation [Not Recovered/Not Resolved]
  - Pain in extremity [Not Recovered/Not Resolved]
  - Arthralgia [Not Recovered/Not Resolved]
  - Vaginal haemorrhage [Recovered/Resolved]
  - Condition aggravated [Unknown]
  - Diarrhoea [Recovered/Resolved]
  - Drug ineffective for unapproved indication [Unknown]
  - Inappropriate schedule of product administration [Recovered/Resolved]

NARRATIVE: CASE EVENT DATE: 20210501
